FAERS Safety Report 5574583-2 (Version None)
Quarter: 2007Q4

REPORT INFORMATION
  Report Type: 
  Country: None (occurrence: None)
  Receive Date: 20071227
  Receipt Date: 20071214
  Transmission Date: 20080405
  Serious: No
  Sender: FDA-Public Use
  Company Number: AU-ASTRAZENECA-2007AP07299

PATIENT
  Age: 70 Year
  Sex: Male

DRUGS (1)
  1. ZOLADEX [Suspect]
     Indication: PROSTATE CANCER
     Route: 058
     Dates: start: 20070919

REACTIONS (7)
  - BREAST SWELLING [None]
  - DEPRESSION [None]
  - HEADACHE [None]
  - PENIS DISORDER [None]
  - TESTICULAR DISORDER [None]
  - VISUAL DISTURBANCE [None]
  - VOMITING [None]
